FAERS Safety Report 4662413-2 (Version None)
Quarter: 2005Q2

REPORT INFORMATION
  Report Type: 
  Country: None (occurrence: None)
  Receive Date: 20050516
  Receipt Date: 20050222
  Transmission Date: 20051028
  Serious: Yes (Life-Threatening, Hospitalization)
  Sender: FDA-Public Use
  Company Number: ZA-MERCK-0502ZAF00018

PATIENT
  Age: 60 Year
  Sex: Male
  Weight: 120 kg

DRUGS (8)
  1. INVANZ [Suspect]
     Indication: SEPSIS
     Route: 065
     Dates: start: 20050123, end: 20050126
  2. DEXAMETHASONE ACETATE [Concomitant]
     Route: 065
  3. WARFARIN [Concomitant]
     Route: 065
  4. VALPROATE SODIUM [Concomitant]
     Route: 065
  5. TEICOPLANIN [Concomitant]
     Route: 065
  6. VALPROATE SODIUM [Concomitant]
     Route: 065
  7. PERINDOPRIL ERBUMINE [Concomitant]
     Route: 065
  8. CLONAZEPAM [Concomitant]
     Route: 065

REACTIONS (2)
  - CONVULSION [None]
  - STATUS EPILEPTICUS [None]
